FAERS Safety Report 7876748-3 (Version None)
Quarter: 2011Q4

REPORT INFORMATION
  Report Type: 
  Country: None (occurrence: None)
  Receive Date: 20111031
  Receipt Date: 20111017
  Transmission Date: 20120403
  Serious: Yes (Death, Other)
  Sender: FDA-Public Use
  Company Number: US-ROCHE-1005725

PATIENT

DRUGS (6)
  1. AVASTIN [Suspect]
     Indication: HEAD AND NECK CANCER
     Dosage: DAYS 1 TO 22 NEO ADJUVANT THERAPY
     Route: 042
  2. PACLITAXEL [Suspect]
     Indication: HEAD AND NECK CANCER
     Dosage: 1-3 HOURS INFUSION DAYS 1 TO 22 NEO ADJUVANT THERAPY
     Route: 042
  3. AVASTIN [Suspect]
     Dosage: ON DAYS 50 AND 71, COMBINED MODALITY THERAPY
     Route: 042
  4. TARCEVA [Suspect]
     Indication: HEAD AND NECK CANCER
     Dosage: FOR SEVEN WEEKS, COMBINED MODALITY THERAPY
     Route: 048
  5. FLUOROURACIL [Suspect]
     Indication: HEAD AND NECK CANCER
     Dosage: 24 HOURS CONTINUOUS INFUSION ON DAYS 1 TO 43, NEO ADJUVANTTHERAPY
     Route: 042
  6. PACLITAXEL [Suspect]
     Dosage: X 6 BEGINNING DAY 1 OF RADIOTHERAPY, COMBINED MODALITY THERAPY
     Route: 042

REACTIONS (19)
  - CEREBROVASCULAR ACCIDENT [None]
  - STOMATITIS [None]
  - DEHYDRATION [None]
  - PAIN [None]
  - NEUTROPENIA [None]
  - RADIATION SKIN INJURY [None]
  - VOMITING [None]
  - PYREXIA [None]
  - NAUSEA [None]
  - PALMAR-PLANTAR ERYTHRODYSAESTHESIA SYNDROME [None]
  - DECREASED APPETITE [None]
  - THROMBOSIS IN DEVICE [None]
  - ANAEMIA [None]
  - DEVICE RELATED INFECTION [None]
  - DIVERTICULAR PERFORATION [None]
  - FATIGUE [None]
  - DIARRHOEA [None]
  - DERMATITIS ACNEIFORM [None]
  - THROMBOCYTOPENIA [None]
